FAERS Safety Report 6153701-1 (Version None)
Quarter: 2009Q2

REPORT INFORMATION
  Report Type: 
  Country: None (occurrence: None)
  Receive Date: 20090413
  Receipt Date: 20090403
  Transmission Date: 20091009
  Serious: Yes (Hospitalization)
  Sender: FDA-Public Use
  Company Number: US-JNJCH-2009009353

PATIENT
  Age: 49 Year
  Sex: Female
  Weight: 65.8 kg

DRUGS (1)
  1. BENGAY ULTRA STRENGTH [Suspect]
     Indication: BACK PAIN
     Dosage: TEXT:UNSPECIFIED
     Route: 061

REACTIONS (2)
  - DRUG INEFFECTIVE [None]
  - PAIN [None]
